FAERS Safety Report 6776255-5 (Version None)
Quarter: 2010Q2

REPORT INFORMATION
  Report Type: 
  Country: None (occurrence: None)
  Receive Date: 20100615
  Receipt Date: 20100604
  Transmission Date: 20101027
  Serious: Yes (Hospitalization)
  Sender: FDA-Public Use
  Company Number: 2010US001656

PATIENT
  Age: 78 Year
  Sex: Female

DRUGS (5)
  1. VESICARE [Suspect]
     Indication: URINARY INCONTINENCE
     Dosage: 10 MG, UID/QD, ORAL; 5 MG, UID/QD, ORAL
     Route: 048
     Dates: start: 20060101, end: 20090501
  2. VESICARE [Suspect]
     Indication: URINARY INCONTINENCE
     Dosage: 10 MG, UID/QD, ORAL; 5 MG, UID/QD, ORAL
     Route: 048
     Dates: start: 20090501
  3. DILANTIN [Concomitant]
  4. CELEBREX [Concomitant]
  5. NEXIUM IV [Concomitant]

REACTIONS (3)
  - DISEASE RECURRENCE [None]
  - MITRAL VALVE INCOMPETENCE [None]
  - URINARY INCONTINENCE [None]
